FAERS Safety Report 7572598-6 (Version None)
Quarter: 2011Q2

REPORT INFORMATION
  Report Type: 
  Country: None (occurrence: None)
  Receive Date: 20110627
  Receipt Date: 20110615
  Transmission Date: 20111010
  Serious: No
  Sender: FDA-Public Use
  Company Number: US-BIOGENIDEC-2011BI022249

PATIENT
  Age: 22 Year
  Sex: Female

DRUGS (1)
  1. TYSABRI [Suspect]
     Indication: MULTIPLE SCLEROSIS
     Route: 042
     Dates: start: 20090205

REACTIONS (7)
  - COUGH [None]
  - HEADACHE [None]
  - EAR INFECTION [None]
  - MUSCLE TIGHTNESS [None]
  - EAR DISCOMFORT [None]
  - PYREXIA [None]
  - SINUSITIS [None]
